FAERS Safety Report 7105510-4 (Version None)
Quarter: 2010Q4

REPORT INFORMATION
  Report Type: 
  Country: None (occurrence: None)
  Receive Date: 20101116
  Receipt Date: 20101104
  Transmission Date: 20110411
  Serious: Yes (Other)
  Sender: FDA-Public Use
  Company Number: JP-ROCHE-723203

PATIENT
  Age: 37 Year
  Sex: Male
  Weight: 56 kg

DRUGS (13)
  1. ACTEMRA [Suspect]
     Indication: WEGENER'S GRANULOMATOSIS
     Route: 041
     Dates: start: 20100129, end: 20100601
  2. ACTEMRA [Suspect]
     Route: 041
     Dates: start: 20100716, end: 20100716
  3. ACTEMRA [Suspect]
     Route: 041
     Dates: start: 20100813
  4. PREDNISOLONE [Concomitant]
     Dosage: NOTE: 10MG IN MORNING AND 5MG IN DAYTIME
     Route: 048
     Dates: start: 20081019
  5. PREDNISOLONE [Concomitant]
     Route: 048
     Dates: start: 20081227
  6. CRESTOR [Concomitant]
     Route: 048
     Dates: start: 20091009
  7. LOXOPROFEN SODIUM [Concomitant]
     Route: 048
     Dates: start: 20081016
  8. REBAMIPIDE [Concomitant]
     Route: 048
     Dates: start: 20081016
  9. PARIET [Concomitant]
     Route: 048
     Dates: start: 20090723
  10. ACTONEL [Concomitant]
     Route: 048
     Dates: start: 20090212
  11. ALPRAZOLAM [Concomitant]
     Route: 048
     Dates: start: 20081103
  12. MYSLEE [Concomitant]
     Route: 048
  13. SULFAMETHOXAZOLE AND TRIMETHOPRIM [Concomitant]
     Route: 048
     Dates: start: 20081016

REACTIONS (3)
  - DYSPNOEA [None]
  - OROPHARYNGEAL DISCOMFORT [None]
  - SYNCOPE [None]
